FAERS Safety Report 8368438-8 (Version None)
Quarter: 2012Q2

REPORT INFORMATION
  Report Type: 
  Country: None (occurrence: None)
  Receive Date: 20120517
  Receipt Date: 20120509
  Transmission Date: 20120825
  Serious: Yes (Other)
  Sender: FDA-Public Use
  Company Number: BR-AMGEN-BRASP2012029958

PATIENT
  Age: 74 Year
  Sex: Female
  Weight: 61 kg

DRUGS (1)
  1. ENBREL [Suspect]
     Indication: RHEUMATOID ARTHRITIS
     Dosage: 25 MG, TWICE WEEKLY
     Dates: start: 20070701, end: 20111001

REACTIONS (4)
  - SKIN WOUND [None]
  - WEIGHT DECREASED [None]
  - PRURITUS GENERALISED [None]
  - SEPSIS [None]
